FAERS Safety Report 7342870-3 (Version None)
Quarter: 2011Q1

REPORT INFORMATION
  Report Type: 
  Country: None (occurrence: None)
  Receive Date: 20110308
  Receipt Date: 20110308
  Transmission Date: 20110831
  Serious: Yes (Other)
  Sender: FDA-Public Use
  Company Number: None

PATIENT

DRUGS (2)
  1. OMNISCAN [Suspect]
     Indication: HEADACHE
     Dosage: 14CC IV
     Route: 042
     Dates: start: 20110302
  2. OMNISCAN [Suspect]
     Indication: NUCLEAR MAGNETIC RESONANCE IMAGING BRAIN
     Dosage: 14CC IV
     Route: 042
     Dates: start: 20110302

REACTIONS (1)
  - ERYTHEMA [None]
